FAERS Safety Report 4965104-3 (Version None)
Quarter: 2006Q1

REPORT INFORMATION
  Report Type: 
  Country: None (occurrence: None)
  Receive Date: 20060207
  Receipt Date: 20050222
  Transmission Date: 20060701
  Serious: Yes (Life-Threatening)
  Sender: FDA-Public Use
  Company Number: 241018

PATIENT
  Age: 34 Year
  Sex: Female
  Weight: 56.7 kg

DRUGS (4)
  1. NOVOLOG [Suspect]
     Indication: DIABETES MELLITUS INSULIN-DEPENDENT
     Dosage: 18 IU, QD + SLIDING SCALE, SUBCUTAN.-PUMP
     Route: 058
     Dates: start: 20010101
  2. MINIMED PARADIGM INSULIN PUMP [Concomitant]
  3. ACCUPRIL [Concomitant]
  4. MULTIVITAMINS (ASCORBIC ACID, ERGOCALCIFEROL, FOLIC ACID, NICOTINAMIDE [Concomitant]

REACTIONS (1)
  - HYPOGLYCAEMIC SEIZURE [None]
